FAERS Safety Report 9321339 (Version 2)
Quarter: 2013Q2

REPORT INFORMATION
  Report Type: Spontaneous
  Country: CO (occurrence: CO)
  Receive Date: 20130531
  Receipt Date: 20130616
  Transmission Date: 20140414
  Serious: Yes (Death, Hospitalization, Other)
  Sender: FDA-Public Use
  Company Number: CO-PFIZER INC-2013165684

PATIENT
  Age: 67 Year
  Sex: Male

DRUGS (1)
  1. LYRICA [Suspect]
     Indication: PROSTATIC PAIN
     Dosage: 75 MG, 2X/DAY
     Route: 048
     Dates: start: 201211, end: 20130411

REACTIONS (5)
  - Off label use [Fatal]
  - Wound infection [Fatal]
  - Prostate cancer [Fatal]
  - Femur fracture [Not Recovered/Not Resolved]
  - Fall [Not Recovered/Not Resolved]
